FAERS Safety Report 7679928-5 (Version None)
Quarter: 2011Q3

REPORT INFORMATION
  Report Type: 
  Country: None (occurrence: None)
  Receive Date: 20110812
  Receipt Date: 20110808
  Transmission Date: 20111222
  Serious: Yes (Hospitalization)
  Sender: FDA-Public Use
  Company Number: US-PFIZER INC-2011181364

PATIENT
  Age: 65 Year
  Sex: Female
  Weight: 89 kg

DRUGS (2)
  1. LYRICA [Suspect]
     Indication: FIBROMYALGIA
     Dosage: 150 MG, 2X/DAY
     Dates: start: 20080101
  2. LYRICA [Suspect]
     Dosage: 300 MG, 2X/DAY
     Dates: start: 20080101

REACTIONS (3)
  - MALAISE [None]
  - HEPATIC ENZYME INCREASED [None]
  - DRUG DISPENSING ERROR [None]
